FAERS Safety Report 16584589 (Version 1)
Quarter: 2019Q3

REPORT INFORMATION
  Report Type: Spontaneous
  Country: NL (occurrence: NL)
  Receive Date: 20190717
  Receipt Date: 20190717
  Transmission Date: 20191004
  Serious: Yes (Hospitalization)
  Sender: FDA-Public Use
  Company Number: NL-B.I. PHARMACEUTICALS,INC./RIDGEFIELD-2019-12-002247

PATIENT
  Sex: Female
  Weight: 67 kg

DRUGS (1)
  1. PRADAXA [Suspect]
     Active Substance: DABIGATRAN ETEXILATE MESYLATE
     Indication: CEREBROVASCULAR ACCIDENT
     Dosage: 2 X DAAGS 110 MG
     Route: 065
     Dates: start: 20171208, end: 20180711

REACTIONS (2)
  - Drug-induced liver injury [Recovered/Resolved]
  - Wound secretion [Recovered/Resolved]
